FAERS Safety Report 19932782 (Version 3)
Quarter: 2022Q4

REPORT INFORMATION
  Report Type: Spontaneous
  Country: DE (occurrence: DE)
  Receive Date: 20211008
  Receipt Date: 20221209
  Transmission Date: 20230113
  Serious: Yes (Death, Hospitalization, Other)
  Sender: FDA-Public Use
  Company Number: DE-BRISTOL-MYERS SQUIBB COMPANY-BMS-2020-067944

PATIENT
  Age: 63 Year
  Sex: Male
  Weight: 56 kg

DRUGS (14)
  1. GABAPENTIN [Suspect]
     Active Substance: GABAPENTIN
     Indication: Toxic neuropathy
     Dosage: 900-600-900 MG
     Route: 065
  2. PREGABALIN [Suspect]
     Active Substance: PREGABALIN
     Indication: Toxic neuropathy
     Dosage: 150 MG 1-0-1
     Route: 065
  3. NIVOLUMAB [Suspect]
     Active Substance: NIVOLUMAB
     Indication: Squamous cell carcinoma of head and neck
     Dosage: 240 MILLIGRAM EVERY 4 WEEK
     Route: 042
     Dates: start: 20200729, end: 20210604
  4. NIVOLUMAB [Suspect]
     Active Substance: NIVOLUMAB
     Dosage: 240 MILLIGRAM EVERY 2 WEEK(240 MILLIGRAM, Q2WK)
     Route: 042
     Dates: start: 20200729, end: 20210604
  5. GABAPENTIN [Concomitant]
     Active Substance: GABAPENTIN
     Indication: Toxic neuropathy
     Dosage: 1800 MILLIGRAM
     Route: 065
  6. GABAPENTIN [Concomitant]
     Active Substance: GABAPENTIN
     Indication: Product used for unknown indication
  7. QUININE SULFATE [Concomitant]
     Active Substance: QUININE SULFATE
     Indication: Product used for unknown indication
     Dosage: 165.74 MILLIGRAM
     Route: 065
  8. PANTOPRAZOLE [Concomitant]
     Active Substance: PANTOPRAZOLE
     Indication: Prophylaxis
     Dosage: 40 MILLIGRAM
     Route: 065
  9. FORMOTEROL [Concomitant]
     Active Substance: FORMOTEROL
     Indication: Lung disorder
     Dosage: 24 MICROGRAM
     Route: 065
  10. OXYCODONE [Concomitant]
     Active Substance: OXYCODONE
     Indication: Product used for unknown indication
     Dosage: 60 MILLIGRAM
     Route: 065
  11. METAMIZOLE [Concomitant]
     Active Substance: METAMIZOLE
     Indication: Product used for unknown indication
     Dosage: 150 MILLIGRAM
     Route: 065
     Dates: end: 202103
  12. METAMIZOLE [Concomitant]
     Active Substance: METAMIZOLE
     Dosage: UNK (GTT DROPS, PRN)
     Route: 065
  13. CHOLECALCIFEROL [Concomitant]
     Active Substance: CHOLECALCIFEROL
     Indication: Product used for unknown indication
     Dosage: UNK (1 CAPSULE EVERY 14 DAYS)
     Route: 065
  14. PREGABALIN [Concomitant]
     Active Substance: PREGABALIN
     Indication: Product used for unknown indication
     Dosage: UNK
     Route: 065
     Dates: start: 20210608

REACTIONS (15)
  - Malignant neoplasm progression [Fatal]
  - Hypothyroidism [Unknown]
  - Toxic neuropathy [Unknown]
  - Disturbance in attention [Recovering/Resolving]
  - Neck pain [Unknown]
  - Restlessness [Not Recovered/Not Resolved]
  - Somnolence [Unknown]
  - Headache [Unknown]
  - Hypokalaemia [Recovering/Resolving]
  - Agitation [Unknown]
  - Delirium [Unknown]
  - Fear [Unknown]
  - Hypocalcaemia [Unknown]
  - Nausea [Recovered/Resolved]
  - Off label use [Unknown]

NARRATIVE: CASE EVENT DATE: 20200730
